FAERS Safety Report 15821619 (Version 1)
Quarter: 2019Q1

REPORT INFORMATION
  Report Type: Spontaneous
  Country: US (occurrence: US)
  Receive Date: 20190113
  Receipt Date: 20190113
  Transmission Date: 20190417
  Serious: No
  Sender: FDA-Public Use
  Company Number: None

PATIENT
  Age: 12 Year
  Sex: Female
  Weight: 42.75 kg

DRUGS (3)
  1. ZANTAC PRN [Concomitant]
  2. ICY HOT BACK AND LARGE AREAS [Suspect]
     Active Substance: MENTHOL
     Indication: MYALGIA
     Dosage: ?          OTHER STRENGTH:?;QUANTITY:1 1;?
     Route: 062
     Dates: start: 20190113, end: 20190113
  3. MOTRIN [Concomitant]
     Active Substance: IBUPROFEN

REACTIONS (1)
  - Application site burn [None]

NARRATIVE: CASE EVENT DATE: 20190113
